FAERS Safety Report 17874158 (Version 2)
Quarter: 2020Q2

REPORT INFORMATION
  Report Type: Spontaneous
  Country: US (occurrence: US)
  Receive Date: 20200609
  Receipt Date: 20200625
  Transmission Date: 20200714
  Serious: No
  Sender: FDA-Public Use
  Company Number: US-HTU-2020US020606

PATIENT
  Sex: Male

DRUGS (2)
  1. VALCHLOR [Suspect]
     Active Substance: MECHLORETHAMINE
     Indication: CUTANEOUS T-CELL LYMPHOMA
     Dosage: UNK, QD
     Route: 061
     Dates: start: 2020, end: 2020
  2. VALCHLOR [Suspect]
     Active Substance: MECHLORETHAMINE
     Dosage: UNK, QOD
     Route: 061
     Dates: start: 2020

REACTIONS (5)
  - Application site erythema [Recovering/Resolving]
  - Application site reaction [Recovering/Resolving]
  - Acrochordon [Recovering/Resolving]
  - Rash pruritic [Recovering/Resolving]
  - Application site irritation [Recovering/Resolving]

NARRATIVE: CASE EVENT DATE: 2020
